FAERS Safety Report 23085620 (Version 1)
Quarter: 2023Q4

REPORT INFORMATION
  Report Type: Spontaneous
  Country: US (occurrence: US)
  Receive Date: 20231019
  Receipt Date: 20231019
  Transmission Date: 20240110
  Serious: No
  Sender: FDA-Public Use
  Company Number: US-PFIZER INC-PV202300171683

PATIENT
  Sex: Female
  Weight: 95.71 kg

DRUGS (22)
  1. MORPHINE SULFATE [Suspect]
     Active Substance: MORPHINE SULFATE
     Dosage: UNK
  2. ALBUTEROL SULFATE [Concomitant]
     Active Substance: ALBUTEROL SULFATE
     Indication: Dyspnoea
     Dosage: UNK, AS NEEDED (INHALE ONE TO TWO PUFFS BY MOUTH EVERY 6 HOURS AS NEEDED)
     Route: 048
  3. AMITRIPTYLINE [Concomitant]
     Active Substance: AMITRIPTYLINE
     Indication: Anxiety
     Dosage: 10 MG, AS NEEDED (TAKE 1 TABLET BY MOUTH UP TO THREE TIMES DAILY AS NEEDED)
     Route: 048
  4. AMITRIPTYLINE [Concomitant]
     Active Substance: AMITRIPTYLINE
     Indication: Irritability
  5. VITAMIN B12 [Concomitant]
     Active Substance: CYANOCOBALAMIN
     Dosage: 1 ML (INJECT ONE (1) ML(S) SUBCUTANEOUSLY EVERY 2 WEEKS)
     Route: 058
  6. DEXTROAMPHET SACCHARAT, AMPHET ASPARTATE, DEXTROAMPHET SULFATE AND AMP [Concomitant]
     Active Substance: AMPHETAMINE ASPARTATE\AMPHETAMINE ASPARTATE MONOHYDRATE\AMPHETAMINE SULFATE\DEXTROAMPHETAMINE SACCHA
     Dosage: 30 MG, DAILY (TAKE 1 TABLET BY MOUTH EVERY DAY)
     Route: 048
  7. DEXTROAMPHET SACCHARAT, AMPHET ASPARTATE, DEXTROAMPHET SULFATE AND AMP [Concomitant]
     Active Substance: AMPHETAMINE ASPARTATE\AMPHETAMINE ASPARTATE MONOHYDRATE\AMPHETAMINE SULFATE\DEXTROAMPHETAMINE SACCHA
     Dosage: 30 MG, 1X/DAY (TAKE 1 CAPSULE BY MOUTH EACH MORNING)
     Route: 048
  8. GABAPENTIN [Concomitant]
     Active Substance: GABAPENTIN
     Dosage: 300 MG, 1X/DAY  (TAKE 1 CAPSULE BY MOUTH EVERY NIGHT AT BEDTIME FOR 1 WEEK)
     Route: 048
  9. GABAPENTIN [Concomitant]
     Active Substance: GABAPENTIN
     Dosage: 600 MG, AS NEEDED (INCREASE TO 2 CAPSULE BY MOUTH EVERY NIGHT AT BEDTIME AS NEEDED)
     Route: 048
  10. LURASIDONE [Concomitant]
     Active Substance: LURASIDONE
     Dosage: 80 MG
  11. LURASIDONE [Concomitant]
     Active Substance: LURASIDONE
     Dosage: 120 MG, DAILY (TAKE 1 TABLET BY MOUTH EVERY DAY. INCREASE FROM 80 MG)
     Route: 048
  12. LYRICA [Concomitant]
     Active Substance: PREGABALIN
     Dosage: 150 MG, 3X/DAY (TAKE 1 CAPSULE(S) 3 TIMES A DAY BY ORAL ROUTE.)
     Route: 048
  13. LYRICA [Concomitant]
     Active Substance: PREGABALIN
     Dosage: 75 MG, 2X/DAY
     Route: 048
  14. NURTEC ODT [Concomitant]
     Active Substance: RIMEGEPANT SULFATE
     Dosage: 75 MG, ALTERNATE DAY (1 TABLET EVERY OTHER DAY)
  15. NYSTATIN [Concomitant]
     Active Substance: NYSTATIN
     Dosage: UNK, 2X/DAY (APPLY TO AFFECTED AREA TWICE A DAY)
     Route: 061
  16. ONDANSETRON [Concomitant]
     Active Substance: ONDANSETRON
     Indication: Nausea
     Dosage: 4 MG, AS NEEDED (DISSOLVE ONE (1) TABLET(S) BY MOUTH EVERY SIX HOURS AS NEEDED)
     Route: 048
  17. VILAZODONE [Concomitant]
     Active Substance: VILAZODONE
     Dosage: 20 MG, 1X/DAY (TAKE 1 TABLET BY MOUTH EVERY NIGHT AT BEDTIME)
     Route: 048
  18. ZAVEGEPANT [Concomitant]
     Active Substance: ZAVEGEPANT
     Indication: Headache
     Dosage: UNK, AS NEEDED (1 NASAL SPRAY DAILY AS NEEDED FOR HEADACHE (10 MG/ACTUATION))
  19. TRAZODONE [Concomitant]
     Active Substance: TRAZODONE HYDROCHLORIDE
     Dosage: UNK, 1X/DAY (TAKE 1/3-1 TABLET BY MOUTH AT BEDTIME)
     Route: 048
  20. LORAZEPAM [Concomitant]
     Active Substance: LORAZEPAM
     Dosage: 0.5 MG, DAILY (TAKE ONE (1) TABLETS(S) BY MOUTH DAILY)
     Route: 048
  21. ESTRADIOL [Concomitant]
     Active Substance: ESTRADIOL
     Dosage: UNK, WEEKLY (0.075 MG/24 HR WEEKLY, APPLY 1 PATCH ON SKIN)
  22. VITAMIN D2 [Concomitant]
     Active Substance: ERGOCALCIFEROL
     Dosage: 1250 UG, WEEKLY (TAKE ONE(1) CAPSULES(S) BY MOUTH ONCE A WEEK)
     Route: 048

REACTIONS (3)
  - Drug hypersensitivity [Unknown]
  - Pruritus [Unknown]
  - Rash [Unknown]
